FAERS Safety Report 10290668 (Version 1)
Quarter: 2014Q3

REPORT INFORMATION
  Report Type: Spontaneous
  Country: IT (occurrence: None)
  Receive Date: 20140708
  Receipt Date: 20140708
  Transmission Date: 20150326
  Serious: Yes (Hospitalization, Other)
  Sender: FDA-Public Use
  Company Number: AUR-APL-2014-06599

PATIENT
  Age: 54 Year
  Sex: Male

DRUGS (3)
  1. LUCEN /01479302/ (ESOMEPRAZOLE MADNESIUM) [Concomitant]
  2. OLPRESS (OLMESARTAN MEDOXOMIL) (TABLET) (OLMESARTAN MEDOXOMIL) [Concomitant]
     Active Substance: OLMESARTAN MEDOXOMIL
  3. LEVOFLOXACIN 500MG (LEVOFLOXACIN) UNKNOWN, 500MG [Suspect]
     Active Substance: LEVOFLOXACIN
     Indication: SINUSITIS
     Route: 048
     Dates: end: 20140423

REACTIONS (7)
  - Haemolytic anaemia [None]
  - Chromaturia [None]
  - Blood creatine abnormal [None]
  - Blood lactate dehydrogenase abnormal [None]
  - Asthenia [None]
  - Myalgia [None]
  - Blood bilirubin abnormal [None]

NARRATIVE: CASE EVENT DATE: 20140423
